FAERS Safety Report 8726176 (Version 2)
Quarter: 2012Q4

REPORT INFORMATION
  Report Type: 
  Country: US (occurrence: US)
  Receive Date: 20120816
  Receipt Date: 20121212
  Transmission Date: 20130627
  Serious: Yes (Hospitalization)
  Sender: FDA-Public Use
  Company Number: US-BAYER-2012-081747

PATIENT
  Age: 33 Year
  Sex: Female
  Weight: 90.7 kg

DRUGS (3)
  1. YAZ [Suspect]
     Indication: CONTRACEPTION
     Dosage: UNK
     Dates: start: 200905, end: 200910
  2. LEVOTHYROXINE [Concomitant]
     Dosage: UNK
     Dates: start: 200905
  3. VESICARE [Concomitant]
     Indication: BLADDER INCONTINENCE
     Dosage: UNK
     Dates: start: 201008

REACTIONS (3)
  - Biliary colic [None]
  - Injury [None]
  - Pain [None]
